FAERS Safety Report 10082105 (Version 3)
Quarter: 2014Q2

REPORT INFORMATION
  Report Type: Spontaneous
  Country: JP (occurrence: JP)
  Receive Date: 20140416
  Receipt Date: 20140519
  Transmission Date: 20141212
  Serious: Yes (Other)
  Sender: FDA-Public Use
  Company Number: JP-BRISTOL-MYERS SQUIBB COMPANY-20527982

PATIENT
  Age: 69 Year
  Sex: Male
  Weight: 59.8 kg

DRUGS (2)
  1. ELIQUIS [Suspect]
     Indication: THROMBOSIS PROPHYLAXIS
     Dosage: TABS
     Route: 048
     Dates: start: 20140228, end: 20140309
  2. ASPIRIN + DI-ALMINATE [Suspect]
     Dosage: 1TABS
     Route: 048
     Dates: start: 20140228, end: 20140309

REACTIONS (2)
  - Melaena [Recovered/Resolved]
  - Pleural effusion [Unknown]
